FAERS Safety Report 11124685 (Version 1)
Quarter: 2015Q2

REPORT INFORMATION
  Report Type: Spontaneous
  Country: CN (occurrence: TW)
  Receive Date: 20150520
  Receipt Date: 20150520
  Transmission Date: 20150821
  Serious: Yes (Death, Hospitalization)
  Sender: FDA-Public Use
  Company Number: CN-SA-2015SA063607

PATIENT
  Age: 60 Year
  Sex: Female

DRUGS (1)
  1. ENOXAPARIN SODIUM. [Suspect]
     Active Substance: ENOXAPARIN SODIUM
     Indication: PULMONARY EMBOLISM
     Route: 065

REACTIONS (8)
  - Retroperitoneal haematoma [Fatal]
  - Shock [Fatal]
  - Myalgia [Fatal]
  - Muscular weakness [Fatal]
  - Haemoglobin decreased [Fatal]
  - Pallor [Fatal]
  - Asthenia [Fatal]
  - Tachycardia [Fatal]
